FAERS Safety Report 8893920 (Version 1)
Quarter: 2012Q4

REPORT INFORMATION
  Report Type: 
  Country: DE (occurrence: US)
  Receive Date: 20121107
  Receipt Date: 20121107
  Transmission Date: 20130627
  Serious: Yes (Other)
  Sender: FDA-Public Use
  Company Number: US-BRISTOL-MYERS SQUIBB COMPANY-17101460

PATIENT
  Age: 77 Year
  Sex: Female

DRUGS (8)
  1. METFORMIN HCL [Suspect]
  2. NITROFURANTOIN [Suspect]
     Indication: URINARY TRACT INFECTION
     Dosage: from 2.6yrs
  3. LOSARTAN [Concomitant]
  4. METOPROLOL [Concomitant]
  5. GLIPIZIDE [Concomitant]
  6. SITAGLIPTIN PHOSPHATE [Concomitant]
  7. MULTIVITAMINS [Concomitant]
  8. IRON [Concomitant]
     Dosage: Iron supplements

REACTIONS (2)
  - Drug-induced liver injury [Recovered/Resolved]
  - Pneumonitis [Recovered/Resolved]
